FAERS Safety Report 20330664 (Version 1)
Quarter: 2022Q1

REPORT INFORMATION
  Report Type: Spontaneous
  Country: US (occurrence: US)
  Receive Date: 20220113
  Receipt Date: 20220113
  Transmission Date: 20220424
  Serious: Yes (Other)
  Sender: FDA-Public Use
  Company Number: US-GLAXOSMITHKLINE-US2022GSK003887

PATIENT
  Sex: Female

DRUGS (2)
  1. ZANTAC [Suspect]
     Active Substance: RANITIDINE HYDROCHLORIDE
     Indication: Gun shot wound
     Dosage: UNKNOWN AT THIS TIME, QD
     Route: 065
     Dates: start: 199401, end: 201112
  2. ZANTAC [Suspect]
     Active Substance: RANITIDINE HYDROCHLORIDE
     Indication: Gun shot wound
     Dosage: UNKNOWN AT THIS TIME, QD
     Route: 065
     Dates: start: 199401, end: 201112

REACTIONS (1)
  - Breast cancer [Unknown]
